FAERS Safety Report 9513284 (Version 1)
Quarter: 2013Q3

REPORT INFORMATION
  Report Type: Spontaneous
  Country: GB (occurrence: GB)
  Receive Date: 20130910
  Receipt Date: 20130910
  Transmission Date: 20140515
  Serious: Yes (Other)
  Sender: FDA-Public Use
  Company Number: GB-WATSON-2013-15877

PATIENT
  Sex: 0

DRUGS (1)
  1. RAMIPRIL (UNKNOWN) [Suspect]
     Indication: BLOOD PRESSURE INCREASED
     Dosage: UNK
     Route: 048
     Dates: start: 20130214, end: 20130314

REACTIONS (3)
  - Oral mucosal exfoliation [Unknown]
  - Pruritus [Unknown]
  - Skin exfoliation [Unknown]
